FAERS Safety Report 4295327-0 (Version None)
Quarter: 2004Q1

REPORT INFORMATION
  Report Type: 
  Country: None (occurrence: None)
  Receive Date: 20040216
  Receipt Date: 20030610
  Transmission Date: 20041129
  Serious: Yes (Other)
  Sender: FDA-Public Use
  Company Number: US-GLAXOSMITHKLINE-A0411803A

PATIENT
  Age: 18 Year
  Sex: Male
  Weight: 82.3 kg

DRUGS (1)
  1. LAMICTAL [Suspect]
     Indication: EPILEPSY
     Route: 048
     Dates: start: 20030401

REACTIONS (1)
  - BLOOD ALKALINE PHOSPHATASE INCREASED [None]
